FAERS Safety Report 5750243-X (Version None)
Quarter: 2008Q2

REPORT INFORMATION
  Report Type: 
  Country: None (occurrence: None)
  Receive Date: 20080523
  Receipt Date: 20080523
  Transmission Date: 20081010
  Serious: Yes (Life-Threatening, Hospitalization)
  Sender: FDA-Public Use
  Company Number: None

PATIENT
  Age: 80 Year
  Sex: Female
  Weight: 112 kg

DRUGS (1)
  1. DIGITEK [Suspect]
     Indication: ATRIAL FIBRILLATION
     Dosage: 250 MCG ONCE DAILY MOUTH
     Route: 048
     Dates: start: 20080211, end: 20080417

REACTIONS (5)
  - DIZZINESS [None]
  - HEART RATE DECREASED [None]
  - HYPOTENSION [None]
  - NAUSEA [None]
  - PHARMACEUTICAL PRODUCT COMPLAINT [None]
